FAERS Safety Report 6866820-9 (Version None)
Quarter: 2010Q3

REPORT INFORMATION
  Report Type: 
  Country: None (occurrence: None)
  Receive Date: 20100722
  Receipt Date: 20100713
  Transmission Date: 20110219
  Serious: Yes (Other)
  Sender: FDA-Public Use
  Company Number: US-BAYER-200938364NA

PATIENT
  Age: 56 Year
  Sex: Male
  Weight: 108 kg

DRUGS (15)
  1. NEXAVAR [Suspect]
     Indication: RENAL CELL CARCINOMA
     Dosage: TOTAL DAILY DOSE: 800 MG  UNIT DOSE: 200 MG
     Route: 048
     Dates: start: 20091022, end: 20091029
  2. NEXAVAR [Interacting]
     Dosage: AS USED: 200-400 MG  UNIT DOSE: 200 MG
     Route: 048
     Dates: start: 20091120, end: 20090101
  3. NEXAVAR [Interacting]
     Dosage: TOTAL DAILY DOSE: 800 MG  UNIT DOSE: 200 MG
     Route: 048
     Dates: start: 20090101, end: 20091209
  4. NEXAVAR [Interacting]
     Dosage: TOTAL DAILY DOSE: 400 MG  UNIT DOSE: 200 MG
     Route: 048
     Dates: start: 20091106, end: 20091119
  5. COUMADIN [Interacting]
     Route: 048
     Dates: end: 20091209
  6. AMIODARONE HCL [Concomitant]
     Dosage: TOTAL DAILY DOSE: 100 MG  UNIT DOSE: 200 MG
     Route: 048
  7. AMLODIPINE [Concomitant]
     Route: 048
  8. FERROUS GLUCONATE [Concomitant]
     Dosage: TOTAL DAILY DOSE: 900 MG  UNIT DOSE: 300 MG
     Route: 048
  9. FLORINEF [Concomitant]
     Route: 048
  10. LASIX [Concomitant]
     Route: 048
  11. HYDROCORTISONE [Concomitant]
     Dosage: UNIT DOSE: 10 MG
     Route: 048
  12. METOPROLOL [Concomitant]
     Dosage: TOTAL DAILY DOSE: 50 MG
     Route: 048
  13. COMPAZINE [Concomitant]
     Dosage: 4 TIMES PER DAY AS NEEDED
  14. CRESTOR [Concomitant]
     Dosage: UNIT DOSE: 40 MG
     Route: 048
  15. DEXAMETHASONE [Concomitant]
     Dosage: UNIT DOSE: 4 MG/ML
     Route: 030

REACTIONS (7)
  - ABDOMINAL PAIN UPPER [None]
  - CANDIDIASIS [None]
  - GASTROINTESTINAL HAEMORRHAGE [None]
  - HAEMARTHROSIS [None]
  - ORAL PAIN [None]
  - TONGUE COATED [None]
  - TONGUE DISCOLOURATION [None]
